FAERS Safety Report 4486734-1 (Version None)
Quarter: 2004Q4

REPORT INFORMATION
  Report Type: 
  Country: None (occurrence: None)
  Receive Date: 20041021
  Receipt Date: 20041005
  Transmission Date: 20050328
  Serious: Yes (Hospitalization, Disabling, Other)
  Sender: FDA-Public Use
  Company Number: S04-GER-02020-01

PATIENT
  Age: 39 Year
  Sex: Female
  Weight: 60 kg

DRUGS (7)
  1. SEROPLEX (ESCITALOPRAM) [Suspect]
     Indication: OVERDOSE
     Dosage: 480 MG ONCE PO
     Route: 048
     Dates: start: 20040404, end: 20040404
  2. SEROPLEX (ESCITALOPRAM) [Suspect]
     Indication: MAJOR DEPRESSION
     Dosage: 15 MG QD PO
     Route: 048
     Dates: end: 20040403
  3. ZYPREXA [Suspect]
     Indication: OVERDOSE
     Dosage: 67 TABLET ONCE PO
     Route: 048
     Dates: start: 20040404, end: 20040404
  4. ZYPREXA [Suspect]
     Dates: end: 20040403
  5. DOXEPIN HCL [Suspect]
     Indication: OVERDOSE
     Dosage: 20 TABLET ONCE PO
     Route: 048
     Dates: start: 20040404, end: 20040404
  6. DOXEPIN HCL [Suspect]
     Indication: SCHIZOPHRENIA
     Dosage: 10 MG TID PO
     Route: 048
     Dates: start: 20030201, end: 20040403
  7. CLONAZEPAM [Concomitant]

REACTIONS (20)
  - AGITATION [None]
  - ATRIOVENTRICULAR BLOCK [None]
  - BLOOD PRESSURE SYSTOLIC INCREASED [None]
  - BRADYCARDIA [None]
  - BRADYPNOEA [None]
  - COMA [None]
  - CYANOSIS [None]
  - ELECTROCARDIOGRAM QT PROLONGED [None]
  - HEART RATE INCREASED [None]
  - HYPOTENSION [None]
  - IMPULSIVE BEHAVIOUR [None]
  - MAJOR DEPRESSION [None]
  - MALAISE [None]
  - MULTIPLE DRUG OVERDOSE INTENTIONAL [None]
  - PALLOR [None]
  - SUICIDE ATTEMPT [None]
  - SYNCOPE VASOVAGAL [None]
  - TONGUE DISORDER [None]
  - TREMOR [None]
  - VERTIGO [None]
